FAERS Safety Report 14799554 (Version 1)
Quarter: 2018Q2

REPORT INFORMATION
  Report Type: Spontaneous
  Country: US (occurrence: US)
  Receive Date: 20180424
  Receipt Date: 20180424
  Transmission Date: 20180711
  Serious: Yes (Life-Threatening, Hospitalization)
  Sender: FDA-Public Use
  Company Number: US-HORIZON-KRY-0111-2018

PATIENT
  Age: 59 Year
  Sex: Male

DRUGS (1)
  1. PEGLOTICASE [Suspect]
     Active Substance: PEGLOTICASE
     Indication: GOUT

REACTIONS (3)
  - Contraindicated product administered [Unknown]
  - Methaemoglobinaemia [Recovered/Resolved]
  - Haemolytic anaemia [Recovered/Resolved]
